FAERS Safety Report 9318621 (Version 1)
Quarter: 2013Q2

REPORT INFORMATION
  Report Type: Spontaneous
  Country: US (occurrence: US)
  Receive Date: 20130530
  Receipt Date: 20130530
  Transmission Date: 20140414
  Serious: No
  Sender: FDA-Public Use
  Company Number: US-NOVEN-12US005839

PATIENT
  Age: 9 Year
  Sex: Male

DRUGS (6)
  1. DAYTRANA [Suspect]
     Indication: ATTENTION DEFICIT/HYPERACTIVITY DISORDER
     Dosage: 20 MG, UNK
     Dates: start: 2012
  2. DAYTRANA [Suspect]
     Dosage: 10 MG, UNK
     Route: 062
     Dates: start: 2012, end: 2012
  3. DAYTRANA [Suspect]
     Dosage: UNK
     Route: 062
     Dates: start: 2010, end: 2010
  4. FOCALIN [Concomitant]
     Dosage: 10 MG, MORNING AND AFTERNOON
     Route: 048
  5. GUANFACINE [Concomitant]
     Dosage: 1.5 MG, AM AND PM
     Route: 048
  6. FLUOXETINE [Concomitant]
     Dosage: 7.5 MG, UNK
     Route: 048

REACTIONS (4)
  - Application site erythema [Not Recovered/Not Resolved]
  - Application site pruritus [Not Recovered/Not Resolved]
  - Application site pain [Not Recovered/Not Resolved]
  - Application site irritation [Recovered/Resolved]
